FAERS Safety Report 10416717 (Version 1)
Quarter: 2014Q3

REPORT INFORMATION
  Report Type: Spontaneous
  Country: US (occurrence: US)
  Receive Date: 20140828
  Receipt Date: 20140828
  Transmission Date: 20150326
  Serious: No
  Sender: FDA-Public Use
  Company Number: US-009507513-1408USA015674

PATIENT
  Age: 21 Month
  Sex: Female
  Weight: 13.61 kg

DRUGS (3)
  1. CLARITIN [Suspect]
     Active Substance: LORATADINE
     Indication: HYPERSENSITIVITY
     Dosage: 7.5 MG, ONCE
     Route: 048
     Dates: start: 20140823
  2. CLARITIN [Suspect]
     Active Substance: LORATADINE
     Dosage: 5 MG, ONCE
     Route: 048
     Dates: start: 20140823
  3. CLARITIN [Suspect]
     Active Substance: LORATADINE
     Dosage: UNK, UNKNOWN
     Route: 048

REACTIONS (3)
  - Off label use [Unknown]
  - Overdose [Unknown]
  - Drug administered to patient of inappropriate age [Unknown]

NARRATIVE: CASE EVENT DATE: 20140823
